FAERS Safety Report 9062167 (Version 3)
Quarter: 2013Q2

REPORT INFORMATION
  Report Type: Spontaneous
  Country: US (occurrence: US)
  Receive Date: 20130129
  Receipt Date: 20130426
  Transmission Date: 20140414
  Serious: Yes (Other)
  Sender: FDA-Public Use
  Company Number: US-ELI_LILLY_AND_COMPANY-US201203007023

PATIENT
  Age: 74 Year
  Sex: Female

DRUGS (3)
  1. FORTEO [Suspect]
     Indication: OSTEOPOROSIS
     Dosage: 20 UG, QD
     Route: 065
     Dates: start: 201203
  2. FORTEO [Suspect]
     Dosage: 20 UG, QD
     Route: 065
  3. FORTEO [Suspect]
     Dosage: 20 UG, QD

REACTIONS (18)
  - Venous thrombosis [Not Recovered/Not Resolved]
  - Blindness unilateral [Not Recovered/Not Resolved]
  - Arthritis [Unknown]
  - Pain in extremity [Unknown]
  - Paraesthesia [Unknown]
  - Fear [Unknown]
  - Injection site mass [Unknown]
  - Injection site bruising [Unknown]
  - Pain [Not Recovered/Not Resolved]
  - Arthralgia [Unknown]
  - Muscle spasms [Unknown]
  - Overdose [Unknown]
  - Limb injury [Unknown]
  - Fall [Unknown]
  - Pain [Unknown]
  - Spinal disorder [Unknown]
  - Retinopathy hypertensive [Unknown]
  - Cataract [Unknown]
